FAERS Safety Report 23470932 (Version 4)
Quarter: 2024Q2

REPORT INFORMATION
  Report Type: Spontaneous
  Country: US (occurrence: US)
  Receive Date: 20240202
  Receipt Date: 20240610
  Transmission Date: 20240716
  Serious: No
  Sender: FDA-Public Use
  Company Number: US-PFIZER INC-PV202400013216

PATIENT
  Age: 14 Year
  Sex: Male

DRUGS (3)
  1. NGENLA [Suspect]
     Active Substance: SOMATROGON-GHLA
     Indication: Delayed puberty
     Dosage: 28 MG, WEEKLY
     Dates: start: 20240129
  2. NGENLA [Suspect]
     Active Substance: SOMATROGON-GHLA
     Dosage: 30 MG
  3. TESTOSTERONE [Concomitant]
     Active Substance: TESTOSTERONE
     Dosage: 25 MG, MONTHLY

REACTIONS (2)
  - Injection site pain [Not Recovered/Not Resolved]
  - Injection site rash [Not Recovered/Not Resolved]

NARRATIVE: CASE EVENT DATE: 20240129
